FAERS Safety Report 8511564 (Version 3)
Quarter: 2013Q4

REPORT INFORMATION
  Report Type: Spontaneous
  Country: US (occurrence: US)
  Receive Date: 20120413
  Receipt Date: 20131219
  Transmission Date: 20140711
  Serious: No
  Sender: FDA-Public Use
  Company Number: US-ASTRAZENECA-2011SE66491

PATIENT
  Age: 50 Year
  Sex: Male
  Weight: 95.3 kg

DRUGS (5)
  1. NEXIUM [Suspect]
     Indication: BARRETT^S OESOPHAGUS
     Route: 048
  2. NEXIUM [Suspect]
     Indication: ULCER
     Route: 048
  3. NEXIUM [Suspect]
     Indication: BARRETT^S OESOPHAGUS
     Route: 048
  4. NEXIUM [Suspect]
     Indication: ULCER
     Route: 048
  5. OTC MEDICATIONS (UNSPECIFIED) [Concomitant]

REACTIONS (6)
  - Bronchitis [Unknown]
  - Aphonia [Unknown]
  - Sinusitis [Unknown]
  - Abdominal pain upper [Unknown]
  - Drug dose omission [Unknown]
  - Intentional drug misuse [Unknown]
